FAERS Safety Report 6587883-4 (Version None)
Quarter: 2010Q1

REPORT INFORMATION
  Report Type: 
  Country: None (occurrence: None)
  Receive Date: 20100218
  Receipt Date: 20100209
  Transmission Date: 20100710
  Serious: Yes (Hospitalization, Other)
  Sender: FDA-Public Use
  Company Number: BR-ASTRAZENECA-2010SE06147

PATIENT
  Age: 43 Year
  Sex: Female
  Weight: 78 kg

DRUGS (4)
  1. ZESTRIL [Suspect]
     Indication: HYPERTENSION
     Route: 048
     Dates: start: 20060101, end: 20080401
  2. SERENATA [Concomitant]
     Indication: PANIC DISORDER
     Dosage: BID
     Route: 048
     Dates: start: 20030101
  3. RIVOTRIL [Concomitant]
     Indication: PANIC DISORDER
     Dosage: BID
     Route: 048
     Dates: start: 20030101
  4. SYNTHROID [Concomitant]
     Indication: THYROID HORMONE REPLACEMENT THERAPY
     Dosage: ONCE DAILY
     Route: 048
     Dates: start: 20000101

REACTIONS (2)
  - DRUG INEFFECTIVE [None]
  - HYPERTENSION [None]
